FAERS Safety Report 4634296-8 (Version None)
Quarter: 2005Q2

REPORT INFORMATION
  Report Type: 
  Country: None (occurrence: None)
  Receive Date: 20050413
  Receipt Date: 20041214
  Transmission Date: 20051028
  Serious: Yes (Disabling)
  Sender: FDA-Public Use
  Company Number: PHBS2004JP16869

PATIENT
  Age: 65 Year
  Sex: Female

DRUGS (3)
  1. SANDIMMUNE [Suspect]
     Indication: APLASTIC ANAEMIA
     Dosage: 300 MG/D
     Route: 048
     Dates: start: 19990901, end: 19991130
  2. LYMPHOGLOBULINE [Concomitant]
     Indication: APLASTIC ANAEMIA
     Dosage: 900 MG/D
     Route: 042
     Dates: start: 19990901, end: 19990905
  3. THYRADIN [Concomitant]

REACTIONS (2)
  - HEADACHE [None]
  - VISUAL ACUITY REDUCED [None]
